FAERS Safety Report 5636425-6 (Version None)
Quarter: 2008Q1

REPORT INFORMATION
  Report Type: 
  Country: None (occurrence: None)
  Receive Date: 20080225
  Receipt Date: 20080116
  Transmission Date: 20080703
  Serious: No
  Sender: FDA-Public Use
  Company Number: A0703637A

PATIENT
  Age: 64 Year
  Sex: Female

DRUGS (6)
  1. VERAMYST [Suspect]
     Dosage: 4SPR PER DAY
     Route: 045
     Dates: start: 20071211
  2. NEILMED SINUS RINSE [Concomitant]
     Indication: SINUS DISORDER
  3. FOSAMAX [Concomitant]
  4. ERYTHROMYCIN [Concomitant]
     Indication: EYELID DISORDER
  5. ALOCRIL [Concomitant]
  6. FLUORIDE [Concomitant]

REACTIONS (4)
  - HEADACHE [None]
  - ILL-DEFINED DISORDER [None]
  - RHINORRHOEA [None]
  - TINNITUS [None]
